FAERS Safety Report 4698513-0 (Version None)
Quarter: 2005Q2

REPORT INFORMATION
  Report Type: 
  Country: None (occurrence: None)
  Receive Date: 20050623
  Receipt Date: 20050614
  Transmission Date: 20051028
  Serious: Yes (Hospitalization)
  Sender: FDA-Public Use
  Company Number: BE-BRISTOL-MYERS SQUIBB COMPANY-13011069

PATIENT
  Age: 56 Year
  Sex: Male

DRUGS (4)
  1. CETUXIMAB [Suspect]
     Indication: COLORECTAL CANCER METASTATIC
     Dosage: MOST RECENT ADMINISTRATION ON 06-JUN-2005,(12TH INFUSION).
     Route: 041
     Dates: start: 20050321
  2. IRINOTECAN HCL [Suspect]
     Indication: COLORECTAL CANCER METASTATIC
     Dosage: MOST RECENT ADMINISTRATION ON 06-JUN-2005,(6TH INFUSION).
     Route: 042
     Dates: start: 20050321
  3. FOLINIC ACID [Suspect]
     Indication: COLORECTAL CANCER METASTATIC
     Dosage: MOST RECENT ADMINISTRATION ON 06-JUN-2005,(6TH INFUSION).
     Route: 042
     Dates: start: 20050321
  4. FLUOROURACIL [Suspect]
     Indication: COLORECTAL CANCER METASTATIC
     Dosage: MOST RECENT ADMINISTRATION ON 06-JUN-2005,(6TH INFUSION).
     Route: 042
     Dates: start: 20050321

REACTIONS (1)
  - ATRIAL FIBRILLATION [None]
